FAERS Safety Report 7963161-3 (Version None)
Quarter: 2011Q4

REPORT INFORMATION
  Report Type: 
  Country: None (occurrence: None)
  Receive Date: 20111207
  Receipt Date: 20111125
  Transmission Date: 20120403
  Serious: Yes (Hospitalization)
  Sender: FDA-Public Use
  Company Number: IE-ELI_LILLY_AND_COMPANY-IE201102005065

PATIENT
  Sex: Female

DRUGS (6)
  1. CALCIUM CARBONATE [Concomitant]
     Dosage: UNK, QD
  2. NEBIVOLOL HCL [Concomitant]
     Dosage: 7.5 MG, QD
     Dates: start: 20100101
  3. LIPITOR [Concomitant]
     Dosage: 40 MG, QD
     Route: 048
  4. PRILOSEC [Concomitant]
     Dosage: 40 MG, QD
     Route: 048
  5. WARFANT [Concomitant]
     Indication: ATRIAL FIBRILLATION
  6. FORTEO [Suspect]
     Indication: OSTEOPOROSIS
     Dosage: 20 UG, UNK
     Route: 058
     Dates: start: 20110201

REACTIONS (4)
  - INTERNATIONAL NORMALISED RATIO INCREASED [None]
  - DIARRHOEA [None]
  - BLOOD PRESSURE INCREASED [None]
  - DRUG LEVEL INCREASED [None]
